FAERS Safety Report 17999327 (Version 1)
Quarter: 2020Q3

REPORT INFORMATION
  Report Type: Spontaneous
  Country: US (occurrence: US)
  Receive Date: 20200708
  Receipt Date: 20200708
  Transmission Date: 20201103
  Serious: Yes (Death)
  Sender: FDA-Public Use
  Company Number: None

PATIENT
  Age: 66 Year
  Sex: Female

DRUGS (15)
  1. OXYCODONE 5MG [Concomitant]
     Active Substance: OXYCODONE
  2. LEVEMIR [Concomitant]
     Active Substance: INSULIN DETEMIR
  3. URSODIOL 300MG [Concomitant]
  4. ONDANSETRON 4MG [Concomitant]
     Active Substance: ONDANSETRON
  5. MYCOPHENOLIC ACID. [Suspect]
     Active Substance: MYCOPHENOLIC ACID
  6. VENLAFAXINE ER 75MG [Concomitant]
     Active Substance: VENLAFAXINE HYDROCHLORIDE
  7. TACROLIMUS. [Suspect]
     Active Substance: TACROLIMUS
     Indication: TRANSPLANT
  8. JANUVIA 25MG [Concomitant]
     Active Substance: SITAGLIPTIN PHOSPHATE
  9. HYDROXYZINE 10MG [Concomitant]
  10. NEPHRO VITE RX [Concomitant]
     Active Substance: ASCORBIC ACID\BIOTIN\CALCIUM PANTOTHENATE\CYANOCOBALAMIN\FOLIC ACID\NIACINAMIDE\PYRIDOXINE HYDROCHLORIDE\RIBOFLAVIN\THIAMINE MONONITRATE
  11. PANTOPRAZOLE 40MG [Concomitant]
     Active Substance: PANTOPRAZOLE SODIUM
  12. SULFA/TRIMETH 400/80 [Concomitant]
  13. PREDNISONE 5MG [Concomitant]
     Active Substance: PREDNISONE
  14. GABAPENTIN 100MG [Concomitant]
     Active Substance: GABAPENTIN
  15. VALCYTE [Concomitant]
     Active Substance: VALGANCICLOVIR HYDROCHLORIDE

REACTIONS (1)
  - Death [None]

NARRATIVE: CASE EVENT DATE: 20200708
